FAERS Safety Report 13375616 (Version 1)
Quarter: 2017Q1

REPORT INFORMATION
  Report Type: Report from Study
  Country: FR (occurrence: FR)
  Receive Date: 20170328
  Receipt Date: 20170328
  Transmission Date: 20170429
  Serious: Yes (Hospitalization)
  Sender: FDA-Public Use
  Company Number: FR-AMGEN-FRANI2017038215

PATIENT
  Age: 47 Year
  Sex: Female
  Weight: 85 kg

DRUGS (4)
  1. METOJECT [Suspect]
     Active Substance: METHOTREXATE SODIUM
     Indication: ANKYLOSING SPONDYLITIS
     Dosage: 20 MG, UNK
     Route: 058
     Dates: start: 20160512
  2. ETANERCEPT [Suspect]
     Active Substance: ETANERCEPT
     Dosage: 50 UNK, UNK
     Route: 065
     Dates: start: 20170217, end: 20170224
  3. ETANERCEPT [Suspect]
     Active Substance: ETANERCEPT
     Indication: PRODUCT USED FOR UNKNOWN INDICATION
     Dosage: 50 MG, QWK
     Route: 065
     Dates: start: 20161201, end: 20161223
  4. CORTANCYL [Concomitant]
     Active Substance: PREDNISONE
     Indication: ANKYLOSING SPONDYLITIS
     Dosage: 5 MG, UNK
     Route: 048

REACTIONS (4)
  - Bronchitis [Recovered/Resolved]
  - Pneumonia [Recovered/Resolved]
  - Superinfection [Recovered/Resolved]
  - Asthma [Recovered/Resolved]

NARRATIVE: CASE EVENT DATE: 20161223
